FAERS Safety Report 4873882-7 (Version None)
Quarter: 2006Q1

REPORT INFORMATION
  Report Type: 
  Country: None (occurrence: None)
  Receive Date: 20060104
  Receipt Date: 20051219
  Transmission Date: 20060701
  Serious: Yes (Other)
  Sender: FDA-Public Use
  Company Number: 2005173046

PATIENT
  Age: 40 Year
  Sex: Female
  Weight: 87.0906 kg

DRUGS (6)
  1. PREDNISONE [Suspect]
     Indication: TRANSPLANT REJECTION
     Dosage: 10 MG (10 MG, 1 IN 1 D), ORAL
     Route: 048
  2. NORVASC [Suspect]
     Indication: HYPERTENSION
     Dosage: 5 MG (5 MG, 1 IN 1 D), ORAL
     Route: 048
  3. ACYCLOVIR [Concomitant]
  4. DAPSONE [Concomitant]
  5. PROGRAF [Concomitant]
  6. CELLCEPT [Concomitant]

REACTIONS (3)
  - HYPERTENSION [None]
  - THERAPY NON-RESPONDER [None]
  - WEIGHT INCREASED [None]
